FAERS Safety Report 14918421 (Version 1)
Quarter: 2018Q2

REPORT INFORMATION
  Report Type: Spontaneous
  Country: US (occurrence: US)
  Receive Date: 20180521
  Receipt Date: 20180521
  Transmission Date: 20180711
  Serious: No
  Sender: FDA-Public Use
  Company Number: US-BAYER-2018-088344

PATIENT
  Sex: Female

DRUGS (2)
  1. MIRALAX [Suspect]
     Active Substance: POLYETHYLENE GLYCOL 3350
     Indication: GASTROINTESTINAL DISORDER
     Dosage: UNK
     Route: 048
     Dates: start: 20180506
  2. COLACE [Concomitant]
     Active Substance: DOCUSATE SODIUM
     Indication: GASTROINTESTINAL DISORDER
     Dosage: 2 DF, QOD MORNING AND NIGHT
     Route: 048

REACTIONS (2)
  - Wrong technique in product usage process [Unknown]
  - Drug effect incomplete [None]

NARRATIVE: CASE EVENT DATE: 20180506
